FAERS Safety Report 9962341 (Version 1)
Quarter: 2014Q1

REPORT INFORMATION
  Report Type: Spontaneous
  Country: DE (occurrence: DE)
  Receive Date: 20140305
  Receipt Date: 20140305
  Transmission Date: 20141002
  Serious: Yes (Other)
  Sender: FDA-Public Use
  Company Number: DE-TEVA-465512GER

PATIENT
  Age: 76 Year
  Sex: Male

DRUGS (1)
  1. FINLEPSIN [Suspect]
     Indication: EPILEPSY
     Dosage: 800 MILLIGRAM DAILY;
     Dates: start: 1990

REACTIONS (1)
  - Retinal dystrophy [Not Recovered/Not Resolved]
